FAERS Safety Report 4650951-8 (Version None)
Quarter: 2005Q2

REPORT INFORMATION
  Report Type: 
  Country: None (occurrence: None)
  Receive Date: 20050503
  Receipt Date: 20041208
  Transmission Date: 20051028
  Serious: Yes (Hospitalization)
  Sender: FDA-Public Use
  Company Number: US-MERCK-0412USA01096

PATIENT
  Age: 50 Year
  Sex: Female
  Weight: 69 kg

DRUGS (8)
  1. VIOXX [Suspect]
     Indication: ARTHRALGIA
     Route: 048
     Dates: start: 20000101, end: 20041001
  2. VIOXX [Suspect]
     Indication: ARTHRITIS
     Route: 048
     Dates: start: 20000101, end: 20041001
  3. PROTONIX [Concomitant]
     Route: 048
  4. GEODON [Concomitant]
     Route: 048
  5. LEXAPRO [Concomitant]
     Route: 048
  6. CLONAZEPAM [Concomitant]
     Route: 048
  7. TRAZODONE HYDROCHLORIDE [Concomitant]
     Route: 048
  8. REMERON [Concomitant]
     Route: 048

REACTIONS (3)
  - CHOLECYSTITIS ACUTE [None]
  - DISEASE RECURRENCE [None]
  - INFECTION [None]
